FAERS Safety Report 4655373-1 (Version None)
Quarter: 2005Q2

REPORT INFORMATION
  Report Type: 
  Country: None (occurrence: None)
  Receive Date: 20050505
  Receipt Date: 20050418
  Transmission Date: 20051028
  Serious: Yes (Other)
  Sender: FDA-Public Use
  Company Number: US-0411107592

PATIENT
  Sex: Female
  Weight: 91 kg

DRUGS (8)
  1. ZYPREXA [Suspect]
     Indication: BIPOLAR DISORDER
     Dosage: 20 MG
     Dates: start: 19990825, end: 20030122
  2. OLANZIPINE/FLUOXETINE CAPSULE [Concomitant]
  3. ARTANE [Concomitant]
  4. BUPROPION [Concomitant]
  5. HALOPERIDOL DECANOATE [Concomitant]
  6. VIOXX [Concomitant]
  7. FUROSEMIDE [Concomitant]
  8. ESTROGENS CONJUGATED [Concomitant]

REACTIONS (17)
  - ATELECTASIS [None]
  - BLOOD CHOLESTEROL INCREASED [None]
  - BLOOD PRESSURE SYSTOLIC INCREASED [None]
  - BUNDLE BRANCH BLOCK [None]
  - CARDIAC FAILURE CONGESTIVE [None]
  - CHEST PAIN [None]
  - DIABETES MELLITUS NON-INSULIN-DEPENDENT [None]
  - EAR PAIN [None]
  - HYPERVENTILATION [None]
  - HYPOXIA [None]
  - LOW DENSITY LIPOPROTEIN INCREASED [None]
  - MASS [None]
  - OEDEMA PERIPHERAL [None]
  - PNEUMONIA [None]
  - STOMATITIS [None]
  - VENOUS INSUFFICIENCY [None]
  - WEIGHT INCREASED [None]
